FAERS Safety Report 5888175-9 (Version None)
Quarter: 2008Q3

REPORT INFORMATION
  Report Type: 
  Country: None (occurrence: None)
  Receive Date: 20080918
  Receipt Date: 20080917
  Transmission Date: 20090109
  Serious: Yes (Hospitalization)
  Sender: FDA-Public Use
  Company Number: JP-ASTRAZENECA-2008AP06862

PATIENT
  Age: 87 Year
  Sex: Female
  Weight: 35.3 kg

DRUGS (7)
  1. MEROPENEM [Suspect]
     Indication: PNEUMONIA
     Route: 042
     Dates: start: 20080409, end: 20080421
  2. ELASPOL [Suspect]
     Indication: LUNG DISORDER
     Route: 042
     Dates: start: 20080411, end: 20080418
  3. CATABON [Concomitant]
     Indication: CARDIAC FAILURE
     Route: 042
     Dates: start: 20080411
  4. NEOPAREN NO 2 [Concomitant]
     Indication: MALNUTRITION
     Route: 042
     Dates: start: 20080411
  5. LASIX [Concomitant]
     Indication: CARDIAC FAILURE
     Route: 042
     Dates: start: 20080415
  6. NEOPHAGEN [Concomitant]
     Indication: LIVER DISORDER
     Route: 042
     Dates: start: 20080416
  7. FOY [Concomitant]
     Indication: DISSEMINATED INTRAVASCULAR COAGULATION
     Route: 042
     Dates: start: 20080418, end: 20080502

REACTIONS (1)
  - HEPATIC FUNCTION ABNORMAL [None]
